FAERS Safety Report 6153982-4 (Version None)
Quarter: 2009Q2

REPORT INFORMATION
  Report Type: 
  Country: None (occurrence: None)
  Receive Date: 20090414
  Receipt Date: 20090331
  Transmission Date: 20091009
  Serious: Yes (Hospitalization, Disabling)
  Sender: FDA-Public Use
  Company Number: CA-BRISTOL-MYERS SQUIBB COMPANY-14583546

PATIENT
  Age: 61 Year
  Sex: Female
  Weight: 41 kg

DRUGS (11)
  1. CETUXIMAB [Suspect]
     Indication: NON-SMALL CELL LUNG CANCER METASTATIC
     Dosage: CHIMERIC ANTI-EFGR MAB
     Route: 042
     Dates: start: 20090326, end: 20090326
  2. DOCETAXEL [Suspect]
     Indication: NON-SMALL CELL LUNG CANCER METASTATIC
     Route: 042
     Dates: start: 20090326, end: 20090326
  3. MORPHINE [Concomitant]
  4. STATEX [Concomitant]
     Dosage: FREQUENCY: Q4HRS.
  5. DOCUSATE SODIUM [Concomitant]
  6. SENNOSIDES [Concomitant]
     Dosage: SENNOSIDES A+B CALCIUM
  7. PANTOPRAZOLE SODIUM [Concomitant]
     Dosage: APO PANTOPRAZOLE
  8. PROCHLORPERAZINE [Concomitant]
  9. DECADRON [Concomitant]
     Dosage: TAKEN WITH CHEMO
  10. PLATINUM [Concomitant]
     Dosage: IMMUNOCAL PLATINUM
     Route: 065
  11. CATS CLAW [Concomitant]
     Route: 065

REACTIONS (4)
  - ABDOMINAL PAIN [None]
  - ASTHENIA [None]
  - CHEST PAIN [None]
  - DECREASED APPETITE [None]
